FAERS Safety Report 10190448 (Version 1)
Quarter: 2014Q2

REPORT INFORMATION
  Report Type: Spontaneous
  Country: US (occurrence: US)
  Receive Date: 20140522
  Receipt Date: 20140522
  Transmission Date: 20141212
  Serious: No
  Sender: FDA-Public Use
  Company Number: US-009507513-1405USA010204

PATIENT
  Age: 27 Year
  Sex: Female
  Weight: 74.83 kg

DRUGS (1)
  1. NEXPLANON [Suspect]
     Indication: CONTRACEPTION
     Dosage: 68 MG, ONE ROD INSERTED, EVERY THREE YEARS
     Route: 059
     Dates: start: 20130201

REACTIONS (4)
  - Device kink [Unknown]
  - Device physical property issue [Unknown]
  - Implant site pain [Unknown]
  - Amenorrhoea [Unknown]
